FAERS Safety Report 4473786-8 (Version None)
Quarter: 2004Q3

REPORT INFORMATION
  Report Type: 
  Country: None (occurrence: None)
  Receive Date: 20040910
  Receipt Date: 20040624
  Transmission Date: 20050211
  Serious: No
  Sender: FDA-Public Use
  Company Number: 2004200883US

PATIENT
  Age: 78 Year
  Sex: Female
  Weight: 68 kg

DRUGS (9)
  1. BEXTRA [Suspect]
     Indication: ARTHRITIS
     Dosage: 10 MG, QD
     Dates: start: 20040220
  2. HYDROCODONE(HYDROCODONE) [Suspect]
  3. COLCHICINE(COLCHICINE) [Suspect]
  4. ZOCOR [Concomitant]
  5. WELCHOL [Concomitant]
  6. ATENOLOL [Concomitant]
  7. LOTENSIN [Concomitant]
  8. NORVASC [Concomitant]
  9. NEXIUM [Concomitant]

REACTIONS (3)
  - FREQUENT BOWEL MOVEMENTS [None]
  - HANGOVER [None]
  - VOMITING [None]
